FAERS Safety Report 23113367 (Version 5)
Quarter: 2025Q3

REPORT INFORMATION
  Report Type: Spontaneous
  Country: EU (occurrence: EU)
  Receive Date: 20231027
  Receipt Date: 20250909
  Transmission Date: 20251021
  Serious: Yes (Death, Hospitalization)
  Sender: IMMUNOCORE
  Company Number: EU-IMMUNOCORE, LTD-2023-IMC-001932

PATIENT

DRUGS (4)
  1. KIMMTRAK [Suspect]
     Active Substance: TEBENTAFUSP-TEBN
     Indication: Malignant melanoma
  2. KIMMTRAK [Suspect]
     Active Substance: TEBENTAFUSP-TEBN
     Dates: start: 20230901
  3. CISPLATIN [Concomitant]
     Active Substance: CISPLATIN
     Indication: Product used for unknown indication
     Dates: start: 202309
  4. METFORMIN [Concomitant]
     Active Substance: METFORMIN HYDROCHLORIDE
     Indication: Diabetes mellitus

REACTIONS (6)
  - Disease progression [Fatal]
  - Jaundice [Fatal]
  - Liver disorder [Fatal]
  - Pyrexia [Fatal]
  - Pyrexia [Unknown]
  - Rash [Unknown]

NARRATIVE: CASE EVENT DATE: 20231001
